FAERS Safety Report 5036348-X (Version None)
Quarter: 2006Q2

REPORT INFORMATION
  Report Type: 
  Country: None (occurrence: None)
  Receive Date: 20060601
  Receipt Date: 20050524
  Transmission Date: 20061013
  Serious: Yes (Disabling)
  Sender: FDA-Public Use
  Company Number: 398411

PATIENT
  Age: 10 Year
  Sex: Female

DRUGS (1)
  1. LARIAM [Suspect]
     Dosage: 1 PER WEEK ORAL
     Route: 048
     Dates: start: 20040415, end: 20040515

REACTIONS (3)
  - INSOMNIA [None]
  - MOOD SWINGS [None]
  - SLEEP DISORDER [None]
